FAERS Safety Report 4941661-8 (Version None)
Quarter: 2006Q1

REPORT INFORMATION
  Report Type: 
  Country: None (occurrence: None)
  Receive Date: 20060313
  Receipt Date: 20060123
  Transmission Date: 20060701
  Serious: Yes (Other)
  Sender: FDA-Public Use
  Company Number: FR-ROCHE-439090

PATIENT
  Age: 15 Year
  Sex: Female

DRUGS (4)
  1. NAPROXEN [Suspect]
     Indication: ILL-DEFINED DISORDER
     Route: 048
     Dates: start: 20010927
  2. ENBREL [Suspect]
     Indication: ILL-DEFINED DISORDER
     Dosage: REPORTED AS 0.6 ML TWICE.
     Route: 058
     Dates: start: 20030815
  3. CORTANCYL [Suspect]
     Indication: ILL-DEFINED DISORDER
     Route: 048
  4. SOMATROPIN [Suspect]
     Route: 058
     Dates: start: 20010927

REACTIONS (1)
  - OSTEONECROSIS [None]
